FAERS Safety Report 4399257-5 (Version None)
Quarter: 2004Q3

REPORT INFORMATION
  Report Type: 
  Country: None (occurrence: None)
  Receive Date: 20040712
  Receipt Date: 20040616
  Transmission Date: 20050211
  Serious: Yes (Hospitalization, Other)
  Sender: FDA-Public Use
  Company Number: US_0403101889

PATIENT
  Age: 87 Year
  Sex: Female
  Weight: 38 kg

DRUGS (6)
  1. EVISTA [Suspect]
     Indication: OSTEOPOROSIS
     Dates: end: 20020101
  2. FOSAMAX [Concomitant]
  3. ATENOLOL [Concomitant]
  4. PLAVIX [Concomitant]
  5. CALCIUM [Concomitant]
  6. TUMS (CALCIUM CARBONATE) [Concomitant]

REACTIONS (3)
  - HIP FRACTURE [None]
  - LUMBAR VERTEBRAL FRACTURE [None]
  - UPPER LIMB FRACTURE [None]
